FAERS Safety Report 4831397-6 (Version None)
Quarter: 2005Q4

REPORT INFORMATION
  Report Type: 
  Country: None (occurrence: None)
  Receive Date: 20051118
  Receipt Date: 20051115
  Transmission Date: 20060501
  Serious: Yes (Other)
  Sender: FDA-Public Use
  Company Number: GB-GLAXOSMITHKLINE-B0400586A

PATIENT
  Age: 63 Year
  Sex: Female

DRUGS (3)
  1. NARAMIG [Suspect]
     Indication: MIGRAINE
     Dosage: 2.5MG UNKNOWN
     Route: 048
     Dates: start: 20011203, end: 20050928
  2. DOMPERIDONE [Concomitant]
     Indication: MIGRAINE
     Dosage: 10MG THREE TIMES PER DAY
     Route: 048
  3. PROPRANOLOL [Concomitant]
     Dosage: 10MG THREE TIMES PER DAY
     Route: 048

REACTIONS (3)
  - CARDIAC FLUTTER [None]
  - EXTRASYSTOLES [None]
  - HEART RATE DECREASED [None]
